FAERS Safety Report 9564318 (Version 2)
Quarter: 2013Q3

REPORT INFORMATION
  Report Type: Spontaneous
  Country: ES (occurrence: GB)
  Receive Date: 20130930
  Receipt Date: 20130930
  Transmission Date: 20140515
  Serious: Yes (Hospitalization, Other)
  Sender: FDA-Public Use
  Company Number: ES-009507513-1111GBR00017

PATIENT
  Age: 75 Year
  Sex: Male

DRUGS (7)
  1. JANUVIA [Suspect]
     Route: 048
  2. ATORVASTATIN [Interacting]
  3. ASPIRIN [Concomitant]
  4. RAMIPRIL [Concomitant]
  5. GLICLAZIDE [Concomitant]
  6. MK-9378 [Concomitant]
  7. PIOGLITAZONE HYDROCHLORIDE [Concomitant]

REACTIONS (2)
  - Rhabdomyolysis [Recovering/Resolving]
  - Drug interaction [Recovering/Resolving]
